FAERS Safety Report 9182212 (Version 1)
Quarter: 2012Q4

REPORT INFORMATION
  Report Type: 
  Country: US (occurrence: US)
  Receive Date: 20121030
  Receipt Date: 20121030
  Transmission Date: 20130627
  Serious: No
  Sender: FDA-Public Use
  Company Number: US-GLAXOSMITHKLINE-A0950262A

PATIENT
  Age: 52 Year
  Sex: Male

DRUGS (7)
  1. SEREVENT [Suspect]
     Indication: ASTHMA
     Dosage: 1PUFF Twice per day
     Route: 055
     Dates: start: 201108
  2. UNSPECIFIED MEDICATION [Concomitant]
     Route: 055
  3. SEREVENT [Concomitant]
     Dates: start: 2008
  4. ALBUTEROL INHALER [Concomitant]
  5. SALBUTAMOL [Concomitant]
  6. BENADRYL [Concomitant]
  7. UNSPECIFIED MEDICATION [Concomitant]
     Indication: GASTROOESOPHAGEAL REFLUX DISEASE

REACTIONS (1)
  - Drug ineffective [Unknown]
